FAERS Safety Report 10680641 (Version 2)
Quarter: 2015Q4

REPORT INFORMATION
  Report Type: Spontaneous
  Country: US (occurrence: US)
  Receive Date: 20141229
  Receipt Date: 20151228
  Transmission Date: 20160304
  Serious: Yes (Hospitalization)
  Sender: FDA-Public Use
  Company Number: US-SA-2014SA118726

PATIENT
  Age: 62 Year
  Sex: Male

DRUGS (14)
  1. ZOLOFT [Concomitant]
     Active Substance: SERTRALINE HYDROCHLORIDE
  2. ALBUTEROL. [Concomitant]
     Active Substance: ALBUTEROL
  3. COREG [Concomitant]
     Active Substance: CARVEDILOL
     Indication: HYPERTENSION
  4. OMEPRAZOLE. [Concomitant]
     Active Substance: OMEPRAZOLE
  5. REGLAN [Concomitant]
     Active Substance: METOCLOPRAMIDE HYDROCHLORIDE
  6. PLAVIX [Suspect]
     Active Substance: CLOPIDOGREL BISULFATE
     Indication: STENT PLACEMENT
     Route: 065
     Dates: start: 2004, end: 20120818
  7. KLONOPIN [Concomitant]
     Active Substance: CLONAZEPAM
  8. CARAFATE [Concomitant]
     Active Substance: SUCRALFATE
  9. COLESTYRAMINE [Concomitant]
     Active Substance: CHOLESTYRAMINE
  10. ASPIRIN. [Concomitant]
     Active Substance: ASPIRIN
  11. ZYRTEC [Concomitant]
     Active Substance: CETIRIZINE HYDROCHLORIDE
     Indication: HYPERSENSITIVITY
  12. LOVAZA [Concomitant]
     Active Substance: OMEGA-3-ACID ETHYL ESTERS
  13. PROTONIX [Concomitant]
     Active Substance: PANTOPRAZOLE SODIUM
  14. OMEGA 3 [Concomitant]
     Active Substance: OMEGA-3 FATTY ACIDS

REACTIONS (2)
  - Gastrointestinal haemorrhage [Recovered/Resolved]
  - Gastrointestinal disorder [Unknown]

NARRATIVE: CASE EVENT DATE: 20100211
